FAERS Safety Report 11892590 (Version 1)
Quarter: 2016Q1

REPORT INFORMATION
  Report Type: Spontaneous
  Country: US (occurrence: US)
  Receive Date: 20160106
  Receipt Date: 20160106
  Transmission Date: 20160526
  Serious: No
  Sender: FDA-Public Use
  Company Number: US-JNJFOC-20151208530

PATIENT
  Sex: Male

DRUGS (2)
  1. HALDOL [Suspect]
     Active Substance: HALOPERIDOL
     Indication: PARANOIA
     Route: 065
  2. HALDOL [Suspect]
     Active Substance: HALOPERIDOL
     Indication: HALLUCINATION
     Route: 065

REACTIONS (5)
  - Restless legs syndrome [Unknown]
  - Feeling abnormal [Unknown]
  - Rash [Unknown]
  - Migraine [Unknown]
  - Postural orthostatic tachycardia syndrome [Unknown]
